FAERS Safety Report 11176305 (Version 3)
Quarter: 2015Q3

REPORT INFORMATION
  Report Type: Report from Study
  Country: DE (occurrence: DE)
  Receive Date: 20150610
  Receipt Date: 20150824
  Transmission Date: 20151125
  Serious: Yes (Hospitalization)
  Sender: FDA-Public Use
  Company Number: PHHY2015DE059958

PATIENT
  Age: 87 Year
  Sex: Female
  Weight: 63 kg

DRUGS (6)
  1. RANITIDINE [Concomitant]
     Active Substance: RANITIDINE\RANITIDINE HYDROCHLORIDE
     Indication: PRODUCT USED FOR UNKNOWN INDICATION
     Dosage: 150 MG, QD
     Route: 065
  2. CARMEN [Concomitant]
     Active Substance: LERCANIDIPINE
     Indication: PRODUCT USED FOR UNKNOWN INDICATION
     Dosage: 10/10, QD
     Route: 065
  3. AMN107 [Suspect]
     Active Substance: NILOTINIB
     Indication: CHRONIC MYELOID LEUKAEMIA
     Dosage: 400 MG, QD
     Route: 048
     Dates: start: 20150410
  4. XARELTO [Concomitant]
     Active Substance: RIVAROXABAN
     Indication: COAGULOPATHY
     Dosage: 15 MG, QD
     Route: 065
  5. METOPROLOL SUCCINATE. [Concomitant]
     Active Substance: METOPROLOL SUCCINATE
     Indication: PRODUCT USED FOR UNKNOWN INDICATION
     Dosage: 23.75 MG, QD
     Route: 065
  6. L-THYROXIN [Concomitant]
     Active Substance: LEVOTHYROXINE SODIUM
     Indication: PRODUCT USED FOR UNKNOWN INDICATION
     Dosage: 50 UG, QD
     Route: 065

REACTIONS (12)
  - Nausea [Recovered/Resolved]
  - Haemoglobin decreased [Unknown]
  - Blood creatinine increased [Recovering/Resolving]
  - Blood pressure abnormal [Unknown]
  - Diarrhoea [Recovered/Resolved]
  - C-reactive protein increased [Recovered/Resolved]
  - Dehydration [Recovered/Resolved]
  - General physical health deterioration [Recovering/Resolving]
  - Gastrointestinal sounds abnormal [Unknown]
  - Red blood cell count decreased [Unknown]
  - Blood glucose increased [Recovered/Resolved]
  - International normalised ratio increased [Unknown]

NARRATIVE: CASE EVENT DATE: 20150428
